FAERS Safety Report 8776452 (Version 1)
Quarter: 2012Q4

REPORT INFORMATION
  Report Type: 
  Country: DE (occurrence: DE)
  Receive Date: 20120910
  Receipt Date: 20120910
  Transmission Date: 20130627
  Serious: Yes (Congenital Anomaly)
  Sender: FDA-Public Use
  Company Number: GXKR2012DE002832

PATIENT

DRUGS (5)
  1. FLUOXETINE [Suspect]
     Dosage: Maternal dose: 40 [mg/d ]/ slow dose reduction to 10 mg and then shortly stopped before delivery
     Route: 064
  2. FOLIC ACID [Concomitant]
     Dosage: Maternal dose: 0,8 [mg/d ] (gw 0 to gw 27)
     Route: 064
  3. IODINE [Concomitant]
  4. UTROGEST [Concomitant]
     Dosage: Maternal dose: 200 [mg/d ] (gw 32.0 to gw 35.0)
     Route: 064
  5. PROSTAGLANDINS [Concomitant]
     Indication: LABOUR INDUCTION

REACTIONS (2)
  - Atrial septal defect [Unknown]
  - Foetal exposure during pregnancy [Unknown]
